FAERS Safety Report 22266820 (Version 1)
Quarter: 2023Q2

REPORT INFORMATION
  Report Type: Spontaneous
  Country: FR (occurrence: FR)
  Receive Date: 20230428
  Receipt Date: 20230428
  Transmission Date: 20230722
  Serious: Yes (Disabling)
  Sender: FDA-Public Use
  Company Number: FR-TEVA-2023-FR-2866663

PATIENT
  Age: 47 Year
  Sex: Female
  Weight: 73 kg

DRUGS (6)
  1. FINGOLIMOD [Suspect]
     Active Substance: FINGOLIMOD
     Indication: Neoplasm
     Route: 048
     Dates: start: 20230206, end: 20230304
  2. GABAPENTIN [Concomitant]
     Active Substance: GABAPENTIN
     Indication: Pain
     Dosage: 100 MG
     Route: 048
     Dates: start: 20200120
  3. GABAPENTIN [Concomitant]
     Active Substance: GABAPENTIN
     Dosage: 300 MG
     Route: 048
  4. BACLOFEN [Concomitant]
     Active Substance: BACLOFEN
     Indication: Multiple sclerosis
     Dosage: 10 MG
     Route: 048
     Dates: start: 20210423
  5. LEVOTHYROXINE [Concomitant]
     Active Substance: LEVOTHYROXINE
     Indication: Hypothyroidism
     Dosage: 50 MCG
     Route: 048
     Dates: start: 20180913
  6. RAMIPRIL [Concomitant]
     Active Substance: RAMIPRIL
     Indication: Hypertension
     Dosage: 2.5 MG
     Route: 048
     Dates: start: 20210618

REACTIONS (5)
  - Fatigue [Not Recovered/Not Resolved]
  - Paraesthesia [Not Recovered/Not Resolved]
  - Pain in extremity [Not Recovered/Not Resolved]
  - Impaired quality of life [Not Recovered/Not Resolved]
  - Product substitution issue [Unknown]

NARRATIVE: CASE EVENT DATE: 20230206
